FAERS Safety Report 5662017-9 (Version None)
Quarter: 2008Q1

REPORT INFORMATION
  Report Type: 
  Country: None (occurrence: None)
  Receive Date: 20080206
  Receipt Date: 20071207
  Transmission Date: 20080703
  Serious: Yes (Other)
  Sender: FDA-Public Use
  Company Number: PHEH2007US15629

PATIENT
  Age: 13 Year
  Sex: Female

DRUGS (1)
  1. ELIDEL [Suspect]
     Indication: HYPERSENSITIVITY
     Dosage: ONCE/SINGLE, TOPICAL
     Route: 061

REACTIONS (5)
  - APPLICATION SITE PRURITUS [None]
  - APPLICATION SITE SWELLING [None]
  - CONDITION AGGRAVATED [None]
  - PRURITUS [None]
  - SWELLING [None]
